FAERS Safety Report 8779903 (Version 2)
Quarter: 2012Q4

REPORT INFORMATION
  Report Type: 
  Country: IT (occurrence: IT)
  Receive Date: 20120912
  Receipt Date: 20120927
  Transmission Date: 20130627
  Serious: Yes (Hospitalization, Other)
  Sender: FDA-Public Use
  Company Number: IT-JNJFOC-20120900285

PATIENT
  Age: 28 Year
  Sex: Female

DRUGS (2)
  1. TOPAMAX [Suspect]
     Indication: PRODUCT USED FOR UNKNOWN INDICATION
     Route: 048
  2. TOPAMAX [Suspect]
     Indication: PRODUCT USED FOR UNKNOWN INDICATION
     Route: 048
     Dates: start: 20120902, end: 20120902

REACTIONS (5)
  - Self injurious behaviour [Unknown]
  - Intentional overdose [Unknown]
  - Euphoric mood [Unknown]
  - Psychomotor hyperactivity [Unknown]
  - Somnolence [Unknown]
